FAERS Safety Report 5211505-8 (Version None)
Quarter: 2006Q4

REPORT INFORMATION
  Report Type: 
  Country: None (occurrence: None)
  Receive Date: 20061115
  Receipt Date: 20060918
  Transmission Date: 20070319
  Serious: No
  Sender: FDA-Public Use
  Company Number: 200610261BWH

PATIENT
  Age: 59 Year
  Sex: Male
  Weight: 92.0802 kg

DRUGS (3)
  1. SORAFENIB [Suspect]
     Indication: RENAL CELL CARCINOMA STAGE UNSPECIFIED
     Dosage: SEE IMAGE
     Route: 048
     Dates: start: 20060105
  2. PREVACID [Concomitant]
  3. NORVASC [Concomitant]

REACTIONS (7)
  - ANOREXIA [None]
  - DIARRHOEA [None]
  - FATIGUE [None]
  - NAUSEA [None]
  - PANCREATITIS [None]
  - PRURITUS [None]
  - WEIGHT DECREASED [None]
